FAERS Safety Report 14389290 (Version 2)
Quarter: 2018Q2

REPORT INFORMATION
  Report Type: Spontaneous
  Country: US (occurrence: US)
  Receive Date: 20180115
  Receipt Date: 20180531
  Transmission Date: 20180711
  Serious: Yes (Other)
  Sender: FDA-Public Use
  Company Number: US-SA-2017SA240365

PATIENT
  Age: 56 Year
  Sex: Female
  Weight: 81 kg

DRUGS (5)
  1. NEOSAR [Concomitant]
     Active Substance: CYCLOPHOSPHAMIDE
     Dosage: UNKNOWN
     Route: 065
  2. TAXOTERE [Suspect]
     Active Substance: DOCETAXEL
     Indication: BREAST CANCER FEMALE
     Dosage: 134 MG,Q3W
     Route: 065
     Dates: start: 20090903, end: 20090903
  3. TAXOTERE [Suspect]
     Active Substance: DOCETAXEL
     Dosage: 134 MG,Q3W
     Route: 051
     Dates: start: 20091015, end: 20091015
  4. LISINOPRIL. [Concomitant]
     Active Substance: LISINOPRIL
     Dosage: UNKNOWN
     Route: 065
     Dates: start: 1979
  5. ATENOL [Concomitant]
     Active Substance: ATENOLOL
     Dosage: UNKNOWN
     Route: 065
     Dates: start: 1979

REACTIONS (2)
  - Psychological trauma [Unknown]
  - Alopecia [Not Recovered/Not Resolved]

NARRATIVE: CASE EVENT DATE: 20100415
